FAERS Safety Report 19718486 (Version 2)
Quarter: 2021Q3

REPORT INFORMATION
  Report Type: Spontaneous
  Country: US (occurrence: US)
  Receive Date: 20210818
  Receipt Date: 20210903
  Transmission Date: 20211014
  Serious: No
  Sender: FDA-Public Use
  Company Number: US-ASTRAZENECA-2021A646600

PATIENT
  Age: 642 Month
  Sex: Female
  Weight: 61.2 kg

DRUGS (2)
  1. BREZTRI AEROSPHERE [Suspect]
     Active Substance: BUDESONIDE\FORMOTEROL\GLYCOPYRRONIUM
     Indication: ASTHMA
     Dosage: 160/9/4.8MCG, 2 PUFFS, TWICE DAILY
     Route: 055
     Dates: start: 202105
  2. SYMBICORT [Suspect]
     Active Substance: BUDESONIDE\FORMOTEROL FUMARATE DIHYDRATE
     Indication: ASTHMA
     Dosage: 160/4.5MCG, 2 PUFFS TWICE DAILY
     Route: 055
     Dates: start: 2008, end: 2021

REACTIONS (8)
  - Dyspnoea [Unknown]
  - Intentional device misuse [Unknown]
  - Cough [Unknown]
  - Wrong technique in device usage process [Unknown]
  - Vomiting [Unknown]
  - Device delivery system issue [Unknown]
  - Drug ineffective [Unknown]
  - Incorrect dose administered by device [Unknown]

NARRATIVE: CASE EVENT DATE: 202105
